FAERS Safety Report 6840208-9 (Version None)
Quarter: 2010Q3

REPORT INFORMATION
  Report Type: 
  Country: None (occurrence: None)
  Receive Date: 20100714
  Receipt Date: 20100625
  Transmission Date: 20110219
  Serious: Yes (Other)
  Sender: FDA-Public Use
  Company Number: PHEH2008US03865

PATIENT
  Sex: Male
  Weight: 74.83 kg

DRUGS (30)
  1. AREDIA [Suspect]
     Dosage: 90 MG, Q 6 WEEKS
     Dates: start: 20020514
  2. ZOMETA [Suspect]
  3. MELPHALAN [Concomitant]
     Dosage: UNK
     Dates: start: 20020301, end: 20030201
  4. PREDNISONE [Concomitant]
     Dosage: UNK
     Route: 048
     Dates: start: 20020301, end: 20030201
  5. ACIPHEX [Concomitant]
     Dosage: 20 MG, QD
     Route: 048
  6. PHOSLO [Concomitant]
     Dosage: UNK
  7. FLOMAX [Concomitant]
     Dosage: UNK
     Route: 048
  8. EPOGEN [Concomitant]
     Dosage: 40000 U, QW
     Dates: start: 20020403
  9. PROCARDIA [Concomitant]
     Dosage: 30 MG, QD
  10. VELCADE [Concomitant]
     Dosage: UNK
     Dates: start: 20020101
  11. COMPAZINE [Concomitant]
     Dosage: 10 MG, PRN
     Route: 048
  12. DEXAMETHASONE ACETATE [Concomitant]
     Dosage: UNK
     Dates: start: 20020101, end: 20020301
  13. GLUCOSAMINE [Concomitant]
     Dosage: 500 MG, BID
     Route: 048
  14. VITAMIN B [Concomitant]
     Dosage: 250 MCG, QD
     Route: 048
  15. VITAMIN D [Concomitant]
     Dosage: 400 U, QD
     Route: 048
  16. LICORICE [Concomitant]
     Dosage: 2 TABS, QD
     Route: 048
  17. PROCRIT                            /00909301/ [Concomitant]
     Dosage: 20000 U, PRN
     Route: 058
  18. NORVASC [Concomitant]
     Dosage: UNK
     Route: 048
  19. CEPHALEXIN [Concomitant]
     Dosage: UNK
     Route: 048
  20. HERBAL EXTRACTS NOS [Concomitant]
     Dosage: UNK
     Route: 048
  21. IRON [Concomitant]
     Dosage: 1, QD
     Route: 048
  22. VITAMIN A + D + CALCIUM [Concomitant]
     Dosage: 1, QD
     Route: 048
  23. ZITHROMAX [Concomitant]
     Dosage: UNK
     Dates: start: 20060117
  24. ASPIRIN [Concomitant]
     Dosage: 325 MG, QW
  25. VITAMIN C [Concomitant]
  26. VITAMIN E [Concomitant]
  27. MINERAL TAB [Concomitant]
  28. ZINC ^AGUETTANT^ [Concomitant]
  29. ATENOLOL [Concomitant]
     Dosage: 25 MG, QD
  30. FLUVACCIN [Concomitant]

REACTIONS (59)
  - ABSCESS JAW [None]
  - ANAEMIA [None]
  - ANXIETY [None]
  - AORTIC DILATATION [None]
  - ARTERIOSCLEROSIS CORONARY ARTERY [None]
  - ARTHRALGIA [None]
  - ARTHRITIS [None]
  - BACTERIAL INFECTION [None]
  - BASAL CELL CARCINOMA [None]
  - BONE LESION [None]
  - BRONCHITIS [None]
  - CATARACT [None]
  - CHEST WALL ABSCESS [None]
  - COUGH [None]
  - DEHYDRATION [None]
  - EMOTIONAL DISTRESS [None]
  - EUSTACHIAN TUBE DYSFUNCTION [None]
  - FATIGUE [None]
  - GINGIVAL INFECTION [None]
  - GRANULOMA [None]
  - HAEMOGLOBIN DECREASED [None]
  - HIP FRACTURE [None]
  - HYPERKALAEMIA [None]
  - HYPERMETABOLISM [None]
  - HYPOACUSIS [None]
  - INCISIONAL DRAINAGE [None]
  - INFECTED SEBACEOUS CYST [None]
  - INFECTION [None]
  - INJURY [None]
  - INTRAOCULAR LENS IMPLANT [None]
  - LIGHT CHAIN ANALYSIS ABNORMAL [None]
  - LYMPH NODE CALCIFICATION [None]
  - MALIGNANT TUMOUR EXCISION [None]
  - NASOPHARYNGITIS [None]
  - ORAL DISORDER [None]
  - OSTEITIS [None]
  - OSTEOLYSIS [None]
  - OSTEONECROSIS OF JAW [None]
  - OSTEOPENIA [None]
  - PAIN [None]
  - PAIN IN JAW [None]
  - PATHOLOGICAL FRACTURE [None]
  - PHYSICAL DISABILITY [None]
  - PLATELET COUNT DECREASED [None]
  - POLLAKIURIA [None]
  - PURULENT DISCHARGE [None]
  - RED CELL DISTRIBUTION WIDTH INCREASED [None]
  - RENAL FAILURE CHRONIC [None]
  - RHINORRHOEA [None]
  - SCAR [None]
  - SINUS BRADYCARDIA [None]
  - SINUS HEADACHE [None]
  - SINUSITIS [None]
  - SPLENIC GRANULOMA [None]
  - SQUAMOUS CELL CARCINOMA [None]
  - TOOTH EXTRACTION [None]
  - TOOTHACHE [None]
  - UPPER LIMB FRACTURE [None]
  - WRIST FRACTURE [None]
